FAERS Safety Report 14249199 (Version 1)
Quarter: 2017Q4

REPORT INFORMATION
  Report Type: Report from Study
  Country: CA (occurrence: CA)
  Receive Date: 20171204
  Receipt Date: 20171204
  Transmission Date: 20180321
  Serious: Yes (Other)
  Sender: FDA-Public Use
  Company Number: CA-TAKEDA-2017TUS024715

PATIENT
  Age: 36 Year
  Sex: Female

DRUGS (15)
  1. GLUMETZA [Concomitant]
     Active Substance: METFORMIN HYDROCHLORIDE
     Dosage: 2000 MG, QD
  2. VEDOLIZUMAB [Suspect]
     Active Substance: VEDOLIZUMAB
     Indication: CROHN^S DISEASE
     Dosage: 300 MG, UNK
     Route: 042
     Dates: start: 20150702
  3. MORPHINE [Concomitant]
     Active Substance: MORPHINE
     Dosage: 15 MG, UNK
  4. ALLOPURINOL. [Concomitant]
     Active Substance: ALLOPURINOL
     Dosage: UNK UNK, BID
  5. SULFATRIM [Concomitant]
     Active Substance: SULFAMETHOXAZOLE\TRIMETHOPRIM
     Dosage: UNK
  6. MYLAN BUPROPION [Concomitant]
     Dosage: 300 MG, UNK
  7. PLAQUENIL                          /00072602/ [Concomitant]
     Active Substance: HYDROXYCHLOROQUINE DIPHOSPHATE
     Dosage: 200 MG, BID
  8. SYNTHROID [Concomitant]
     Active Substance: LEVOTHYROXINE SODIUM
     Dosage: 0.1 MG, QD
  9. PREDNISONE. [Concomitant]
     Active Substance: PREDNISONE
     Dosage: 35 MG, QD
  10. IMURAN [Concomitant]
     Active Substance: AZATHIOPRINE
     Dosage: 50 MG, QD
  11. CALCIUM [Concomitant]
     Active Substance: CALCIUM
     Dosage: 500 MG, QD
  12. ONDANSETRON [Concomitant]
     Active Substance: ONDANSETRON
     Dosage: 8 MG, QD
  13. VEDOLIZUMAB [Suspect]
     Active Substance: VEDOLIZUMAB
     Dosage: 300 MG, Q4WEEKS
     Route: 042
     Dates: start: 20170117
  14. DIAMICRON [Concomitant]
     Active Substance: GLICLAZIDE
     Dosage: 30 MG, QD
  15. VICTOZA [Concomitant]
     Active Substance: LIRAGLUTIDE
     Dosage: UNK

REACTIONS (2)
  - Intestinal operation [Unknown]
  - Off label use [Unknown]

NARRATIVE: CASE EVENT DATE: 20170117
